FAERS Safety Report 20894010 (Version 2)
Quarter: 2022Q2

REPORT INFORMATION
  Report Type: Spontaneous
  Country: PT (occurrence: PT)
  Receive Date: 20220531
  Receipt Date: 20220607
  Transmission Date: 20220720
  Serious: Yes (Other)
  Sender: FDA-Public Use
  Company Number: PT-EMA-DD-20220517-116003-105721

PATIENT
  Age: 54 Year
  Sex: Female

DRUGS (1)
  1. METFORMIN [Suspect]
     Active Substance: METFORMIN HYDROCHLORIDE
     Indication: Type 2 diabetes mellitus
     Dosage: 2000 MILLIGRAM, QD (1000 MILLIGRAM, TWO TIMES A DAY)
     Route: 065

REACTIONS (10)
  - Acute kidney injury [Recovering/Resolving]
  - Dehydration [Not Recovered/Not Resolved]
  - Polyuria [Recovering/Resolving]
  - Metabolic acidosis [Not Recovered/Not Resolved]
  - Lactic acidosis [Recovered/Resolved]
  - Anion gap increased [Not Recovered/Not Resolved]
  - Oliguria [Not Recovered/Not Resolved]
  - Hypoperfusion [Not Recovered/Not Resolved]
  - Fatigue [Not Recovered/Not Resolved]
  - Hypoxia [Not Recovered/Not Resolved]
